FAERS Safety Report 7209156-9 (Version None)
Quarter: 2011Q1

REPORT INFORMATION
  Report Type: 
  Country: None (occurrence: None)
  Receive Date: 20110104
  Receipt Date: 20101228
  Transmission Date: 20110831
  Serious: Yes (Other)
  Sender: FDA-Public Use
  Company Number: US-US-EMD SERONO, INC.-7022207

PATIENT
  Sex: Female
  Weight: 68 kg

DRUGS (6)
  1. ADVIL [Concomitant]
     Indication: ADNEXA UTERI PAIN
  2. VALIUM [Concomitant]
     Indication: VERTIGO
  3. ADVIL [Concomitant]
     Indication: PREMEDICATION
  4. AMBIEN [Concomitant]
     Indication: INSOMNIA
  5. REBIF [Suspect]
     Indication: MULTIPLE SCLEROSIS
     Route: 058
     Dates: start: 20100621
  6. BENADRYL [Concomitant]
     Indication: PREMEDICATION

REACTIONS (6)
  - INJECTION SITE ERYTHEMA [None]
  - VERTIGO [None]
  - MUSCULOSKELETAL PAIN [None]
  - HEPATIC ENZYME INCREASED [None]
  - OVARIAN CYST [None]
  - INJECTION SITE PAIN [None]
